FAERS Safety Report 10086999 (Version 1)
Quarter: 2014Q2

REPORT INFORMATION
  Report Type: Spontaneous
  Country: CA (occurrence: CA)
  Receive Date: 20140418
  Receipt Date: 20140418
  Transmission Date: 20141212
  Serious: Yes (Other)
  Sender: FDA-Public Use
  Company Number: CHPA2014CA005423

PATIENT
  Age: 64 Year
  Sex: Female

DRUGS (4)
  1. EXCEDRIN EXTRA STRENGTH - CA [Suspect]
     Indication: HEADACHE
     Dosage: 1 DF, PRN
     Route: 048
  2. EXCEDRIN EXTRA STRENGTH - CA [Suspect]
     Dosage: 1 DF, PRN
     Route: 048
  3. NAPROXEN [Concomitant]
     Indication: PREMENSTRUAL HEADACHE
  4. TYLENOL [Concomitant]
     Indication: HEADACHE

REACTIONS (6)
  - Arthritis [Not Recovered/Not Resolved]
  - Synovial cyst [Not Recovered/Not Resolved]
  - Hypertension [Not Recovered/Not Resolved]
  - Asthenopia [Not Recovered/Not Resolved]
  - Therapeutic response decreased [Unknown]
  - Expired product administered [Unknown]
